FAERS Safety Report 11447341 (Version 1)
Quarter: 2015Q3

REPORT INFORMATION
  Report Type: Spontaneous
  Country: US (occurrence: US)
  Receive Date: 20150831
  Receipt Date: 20150831
  Transmission Date: 20151125
  Serious: No
  Sender: FDA-Public Use
  Company Number: US-ELI_LILLY_AND_COMPANY-US200903005628

PATIENT
  Sex: Female

DRUGS (7)
  1. CYMBALTA [Suspect]
     Active Substance: DULOXETINE HYDROCHLORIDE
     Dosage: 60 MG, DAILY (1/D)
     Dates: start: 2008
  2. CYMBALTA [Suspect]
     Active Substance: DULOXETINE HYDROCHLORIDE
     Dosage: 120 MG, DAILY (1/D)
  3. CYMBALTA [Suspect]
     Active Substance: DULOXETINE HYDROCHLORIDE
     Dosage: 30 MG, DAILY (1/D)
  4. CYMBALTA [Suspect]
     Active Substance: DULOXETINE HYDROCHLORIDE
     Dosage: 90 MG, DAILY (1/D)
  5. CYMBALTA [Suspect]
     Active Substance: DULOXETINE HYDROCHLORIDE
     Dosage: 90 MG, DAILY (1/D)
  6. CYMBALTA [Suspect]
     Active Substance: DULOXETINE HYDROCHLORIDE
     Indication: ANXIETY
     Dosage: 30 MG, DAILY (1/D)
  7. CYMBALTA [Suspect]
     Active Substance: DULOXETINE HYDROCHLORIDE
     Dosage: 60 MG, DAILY (1/D)

REACTIONS (13)
  - Drug withdrawal syndrome [Not Recovered/Not Resolved]
  - Hyperhidrosis [Unknown]
  - Paraesthesia [Unknown]
  - Diarrhoea [Unknown]
  - Malaise [Unknown]
  - Abnormal sensation in eye [Unknown]
  - Dyspepsia [Unknown]
  - Dizziness [Unknown]
  - Constipation [Unknown]
  - Influenza like illness [Unknown]
  - Pain [Unknown]
  - Insomnia [Unknown]
  - Abnormal dreams [Unknown]
